FAERS Safety Report 7364967-4 (Version None)
Quarter: 2011Q1

REPORT INFORMATION
  Report Type: 
  Country: None (occurrence: None)
  Receive Date: 20110321
  Receipt Date: 20110308
  Transmission Date: 20110831
  Serious: Yes (Hospitalization)
  Sender: FDA-Public Use
  Company Number: US-JNJFOC-20060203177

PATIENT
  Sex: Male
  Weight: 52 kg

DRUGS (11)
  1. INFLIXIMAB [Suspect]
     Indication: ANORECTAL DISORDER
     Route: 042
  2. AMPICILLIN [Concomitant]
     Route: 042
  3. AZATHIOPRINE [Concomitant]
  4. CULTURELLE [Concomitant]
  5. GENTAMICIN [Concomitant]
     Route: 042
  6. METRONIDAZOLE [Concomitant]
     Route: 042
  7. INFLIXIMAB [Suspect]
     Route: 042
  8. AZATHIOPRINE [Concomitant]
  9. MESALAMINE [Concomitant]
     Route: 048
  10. CIPRO [Concomitant]
  11. PREVACID [Concomitant]

REACTIONS (4)
  - ABDOMINAL ABSCESS [None]
  - CROHN'S DISEASE [None]
  - MALNUTRITION [None]
  - CELLULITIS [None]
